FAERS Safety Report 9215418 (Version 1)
Quarter: 2013Q2

REPORT INFORMATION
  Report Type: Report from Study
  Country: NZ (occurrence: NZ)
  Receive Date: 20130405
  Receipt Date: 20130405
  Transmission Date: 20140414
  Serious: Yes (Hospitalization)
  Sender: FDA-Public Use
  Company Number: NZ-AMGEN-US244074

PATIENT
  Age: 77 Year
  Sex: Male

DRUGS (4)
  1. DENOSUMAB [Suspect]
     Indication: METASTASES TO BONE
     Dosage: UNK UNK, UNK
     Route: 065
     Dates: start: 20061214
  2. DIGOXIN [Concomitant]
     Dosage: 125 ?G, QD
     Route: 065
     Dates: start: 200709
  3. WARFARIN [Concomitant]
     Dosage: UNK UNK, QD
     Route: 048
     Dates: start: 200709
  4. METOPROLOL [Concomitant]
     Dosage: 142.5 MG, QD
     Route: 065

REACTIONS (1)
  - Pneumonia [Recovered/Resolved]
